FAERS Safety Report 4677259-9 (Version None)
Quarter: 2005Q2

REPORT INFORMATION
  Report Type: 
  Country: None (occurrence: None)
  Receive Date: 20050526
  Receipt Date: 20050510
  Transmission Date: 20051028
  Serious: Yes (Hospitalization)
  Sender: FDA-Public Use
  Company Number: DSA_26422_2005

PATIENT
  Age: 40 Year
  Sex: Female

DRUGS (4)
  1. TAVOR [Suspect]
     Dosage: 25 MG ONCE PO
     Route: 048
     Dates: start: 20050507, end: 20050507
  2. VENLAFAXINE HCL [Suspect]
     Dosage: 3900 MG ONCE PO
     Route: 048
     Dates: start: 20050507, end: 20050507
  3. ZOPICLONE [Suspect]
     Dosage: 150 MG ONCE PO
     Route: 048
     Dates: start: 20050507, end: 20050507
  4. ZYPREXA [Suspect]
     Dosage: 1035 MG ONCE PO
     Route: 048
     Dates: start: 20050507, end: 20050507

REACTIONS (4)
  - INTENTIONAL MISUSE [None]
  - LOSS OF CONSCIOUSNESS [None]
  - MULTIPLE DRUG OVERDOSE [None]
  - TACHYCARDIA [None]
